FAERS Safety Report 9282438 (Version 2)
Quarter: 2013Q2

REPORT INFORMATION
  Report Type: Spontaneous
  Country: GB (occurrence: GB)
  Receive Date: 20130510
  Receipt Date: 20130530
  Transmission Date: 20140414
  Serious: Yes (Hospitalization)
  Sender: FDA-Public Use
  Company Number: GB-ROCHE-1223031

PATIENT
  Age: 67 Year
  Sex: Male

DRUGS (5)
  1. MABTHERA [Suspect]
     Indication: MANTLE CELL LYMPHOMA
     Route: 042
     Dates: start: 20130426, end: 20130426
  2. PARACETAMOL [Concomitant]
     Indication: PREMEDICATION
     Route: 048
     Dates: start: 20130426, end: 20130426
  3. DOXAZOSIN [Concomitant]
     Indication: HYPERTENSION
     Route: 048
  4. CHLORPHENIRAMINE [Concomitant]
     Indication: PREMEDICATION
     Route: 042
     Dates: start: 20130426, end: 20130426
  5. ONDANSETRON [Concomitant]
     Indication: PREMEDICATION
     Route: 048
     Dates: start: 20130426, end: 20130426

REACTIONS (3)
  - Haematuria [Recovered/Resolved]
  - Back pain [Recovered/Resolved]
  - Back pain [Recovered/Resolved]
